FAERS Safety Report 12369489 (Version 1)
Quarter: 2016Q2

REPORT INFORMATION
  Report Type: Spontaneous
  Country: US (occurrence: None)
  Receive Date: 20160513
  Receipt Date: 20160513
  Transmission Date: 20160815
  Serious: Yes (Other)
  Sender: FDA-Public Use
  Company Number: None

PATIENT
  Age: 67 Year
  Sex: Female
  Weight: 71.67 kg

DRUGS (5)
  1. CQ-10 [Concomitant]
  2. ATORVASTATIN, 40 MG [Suspect]
     Active Substance: ATORVASTATIN
     Indication: BLOOD CHOLESTEROL INCREASED
     Route: 048
     Dates: start: 20150507, end: 20160406
  3. LOW-DOSE ASPIRIN [Concomitant]
     Active Substance: ASPIRIN
  4. CARVEDILOL. [Concomitant]
     Active Substance: CARVEDILOL
  5. LOSARTON [Concomitant]

REACTIONS (4)
  - Impaired driving ability [None]
  - Neuropathy peripheral [None]
  - Trigger finger [None]
  - Activities of daily living impaired [None]

NARRATIVE: CASE EVENT DATE: 20150902
